FAERS Safety Report 8932415 (Version 1)
Quarter: 2012Q4

REPORT INFORMATION
  Report Type: Report from Study
  Country: JP (occurrence: JP)
  Receive Date: 20121128
  Receipt Date: 20121128
  Transmission Date: 20130627
  Serious: Yes (Hospitalization, Other)
  Sender: FDA-Public Use
  Company Number: JP-VERTEX PHARMACEUTICAL INC.-AE-2012-001543

PATIENT
  Age: 61 Year
  Sex: Female

DRUGS (10)
  1. VX-950 (TELAPREVIR) [Suspect]
     Indication: CHRONIC HEPATITIS C
     Dosage: 2250 mg, qd
     Route: 048
     Dates: start: 20120111, end: 20120118
  2. VX-950 (TELAPREVIR) [Suspect]
     Dosage: 1500 UNK, UNK
     Route: 048
     Dates: start: 20120126, end: 20120305
  3. PEGINTRON                          /01543001/ [Suspect]
     Indication: CHRONIC HEPATITIS C
     Dosage: 1.5 ?g/kg, qw
     Route: 058
     Dates: start: 20120111, end: 20120111
  4. PEGINTRON                          /01543001/ [Suspect]
     Dosage: 0.7 ?g/kg, qw`
     Route: 058
     Dates: start: 20120126, end: 20120302
  5. PEGINTRON                          /01543001/ [Suspect]
     Dosage: 0.7 ?g/kg, qw
     Route: 058
     Dates: start: 20120314
  6. REBETOL [Suspect]
     Indication: CHRONIC HEPATITIS C
     Dosage: 600 mg, qd
     Route: 048
     Dates: start: 20120111, end: 20120118
  7. REBETOL [Suspect]
     Dosage: 400 mg, qd
     Route: 048
     Dates: start: 20120126, end: 20120216
  8. REBETOL [Suspect]
     Dosage: 200 mg, qd
     Route: 048
     Dates: start: 20120217, end: 20120305
  9. REBETOL [Suspect]
     Dosage: 200 mg, qd
     Route: 048
     Dates: start: 20120314
  10. PARIET [Concomitant]
     Dosage: 20 mg, qd
     Route: 048
     Dates: start: 20120306, end: 20120501

REACTIONS (2)
  - Erythema [Recovered/Resolved]
  - Platelet count decreased [Recovered/Resolved]
